FAERS Safety Report 9314442 (Version 4)
Quarter: 2013Q4

REPORT INFORMATION
  Report Type: Spontaneous
  Country: US (occurrence: US)
  Receive Date: 20130529
  Receipt Date: 20131010
  Transmission Date: 20140711
  Serious: No
  Sender: FDA-Public Use
  Company Number: US-PFIZER INC-2013160838

PATIENT
  Age: 69 Year
  Sex: Female
  Weight: 111 kg

DRUGS (23)
  1. INLYTA [Suspect]
     Indication: PROSTATE CANCER
     Dosage: 5 MG, 2X/DAY
     Route: 048
     Dates: start: 20130124
  2. INLYTA [Suspect]
     Indication: METASTATIC RENAL CELL CARCINOMA
     Dosage: 5 MG, 2X/DAY
     Route: 048
     Dates: start: 20130205
  3. INLYTA [Suspect]
     Indication: RENAL CELL CARCINOMA
     Dosage: 5 MG, BID EVERY OTHER DAY
     Route: 048
     Dates: start: 20130306, end: 20130920
  4. ASPIRIN [Concomitant]
     Dosage: 81 MG, 1X/DAY (DAILY)
     Route: 048
  5. LYRICA [Concomitant]
     Dosage: 100 MG, 3X/DAY
     Route: 048
  6. LYRICA [Concomitant]
     Dosage: 150 MG, 3X/DAY
     Route: 048
  7. SKELAXIN [Concomitant]
     Dosage: 800 MG, TAKE 1 AS NEEDED
     Route: 048
  8. OMEPRAZOLE [Concomitant]
     Dosage: 20 MG, 1X/DAY (DAILY)
     Route: 048
  9. CYTOMEL [Concomitant]
     Dosage: 5 UG, 1X/DAY (DAILY)
     Route: 048
  10. HYDROCHLOROTHIAZIDE [Concomitant]
     Dosage: 25 MG, 1X/DAY (QD)
     Route: 048
  11. NOVOLOG [Concomitant]
     Dosage: UNK
  12. SIMVASTATIN [Concomitant]
     Dosage: 20 MG, 1X/DAY (DAILY)
     Route: 048
  13. LEVOTHYROXINE SODIUM [Concomitant]
     Dosage: 175 UG, 1X/DAY (DAILY)
     Route: 048
  14. AMITRIPTYLINE HYDROCHLORIDE [Concomitant]
     Dosage: 50 MG, TAKE 1 QHS
     Route: 048
  15. LANTUS [Concomitant]
     Dosage: 50 IU, 1X/DAY (QD)
     Route: 058
  16. TOPROL XL [Concomitant]
     Dosage: 50 MG, 1X/DAY (DAILY)
     Route: 048
  17. FOSINOPRIL SODIUM [Concomitant]
     Dosage: 40 MG, 1X/DAY (DAILY)
     Route: 048
  18. HYDROCODONE W/ACETAMINOPHEN [Concomitant]
     Dosage: HYDROCODONE (5MG)/ACETAMINOPHEN (500MG)
     Route: 048
  19. HYDROCODONE W/ACETAMINOPHEN [Concomitant]
     Dosage: HYDROCODONE (3MG)/ACETAMINOPHEN (325MG), QD PRN
     Route: 048
  20. TRAMADOL HYDROCHLORIDE [Concomitant]
     Dosage: 100 MG, MULTIPHASE 25-75, EVERY 4 HRS
     Route: 048
  21. HYDROCHLOROTHIAZIDE WITH TRIAMTERENE [Concomitant]
     Dosage: 1 DF (HYDROCHLOROTHIAZIDE (25MG), TRIAMTERENE (37.5 MG)), 1X/DAY
     Route: 048
  22. VITAMIN E [Concomitant]
     Dosage: 400 IU, 1X/DAY
  23. VITAMIN D3 [Concomitant]
     Dosage: 2000 IU, 1X/DAY/MV

REACTIONS (9)
  - Off label use [Unknown]
  - Drug intolerance [Unknown]
  - Diarrhoea [Unknown]
  - Disturbance in attention [Unknown]
  - Drug dose omission [Unknown]
  - Bone pain [Recovered/Resolved]
  - Gastrointestinal disorder [Recovered/Resolved]
  - Arthralgia [Recovered/Resolved]
  - Confusional state [Unknown]
